FAERS Safety Report 4434217-7 (Version None)
Quarter: 2004Q3

REPORT INFORMATION
  Report Type: 
  Country: None (occurrence: None)
  Receive Date: 20040726
  Receipt Date: 20040415
  Transmission Date: 20050211
  Serious: No
  Sender: FDA-Public Use
  Company Number: USA040157223

PATIENT
  Age: 80 Year
  Sex: Female

DRUGS (3)
  1. FORTEO [Suspect]
     Dates: start: 20030701
  2. PROMATINE (MIDODRINE HYDROCHLORIDE) [Concomitant]
  3. REQUIP [Concomitant]

REACTIONS (2)
  - DYSPNOEA [None]
  - INJECTION SITE MASS [None]
